FAERS Safety Report 5997353-X (Version None)
Quarter: 2008Q4

REPORT INFORMATION
  Report Type: 
  Country: None (occurrence: None)
  Receive Date: 20081210
  Receipt Date: 20081201
  Transmission Date: 20090506
  Serious: Yes (Other)
  Sender: FDA-Public Use
  Company Number: CHNY2008JP03221

PATIENT
  Age: 64 Year
  Sex: Male

DRUGS (1)
  1. NICOTINE [Suspect]
     Indication: SMOKING CESSATION THERAPY
     Dosage: 14 MG, QD, TRANSDERMAL
     Route: 062
     Dates: start: 20080820, end: 20080821

REACTIONS (4)
  - ASTHENIA [None]
  - DIZZINESS POSTURAL [None]
  - HYPOTENSION [None]
  - MALAISE [None]
